FAERS Safety Report 20816545 (Version 1)
Quarter: 2022Q2

REPORT INFORMATION
  Report Type: Spontaneous
  Country: US (occurrence: US)
  Receive Date: 20220512
  Receipt Date: 20220512
  Transmission Date: 20220721
  Serious: No
  Sender: FDA-Public Use
  Company Number: US-ELI_LILLY_AND_COMPANY-US202205003591

PATIENT
  Sex: Male

DRUGS (4)
  1. REYVOW [Suspect]
     Active Substance: LASMIDITAN
     Indication: Migraine
     Dosage: 100 MG, UNKNOWN
     Route: 048
     Dates: start: 202204
  2. REYVOW [Suspect]
     Active Substance: LASMIDITAN
     Dosage: 100 MG, UNKNOWN
     Route: 048
  3. UBRELVY [Concomitant]
     Active Substance: UBROGEPANT
     Indication: Migraine
  4. QULIPTA [Concomitant]
     Active Substance: ATOGEPANT
     Indication: Migraine

REACTIONS (3)
  - Sedation [Unknown]
  - Fatigue [Unknown]
  - Somnolence [Unknown]
